FAERS Safety Report 15712330 (Version 4)
Quarter: 2018Q4

REPORT INFORMATION
  Report Type: Spontaneous
  Country: VN (occurrence: VN)
  Receive Date: 20181212
  Receipt Date: 20181218
  Transmission Date: 20190205
  Serious: Yes (Death)
  Sender: FDA-Public Use
  Company Number: VN-ABBVIE-18S-179-2585808-00

PATIENT
  Age: 48 Year
  Sex: Male
  Weight: 55 kg

DRUGS (6)
  1. SEVORANE [Suspect]
     Active Substance: SEVOFLURANE
     Indication: ANAESTHESIA
     Route: 055
     Dates: start: 20181030, end: 20181030
  2. MIDAZOLAM [Concomitant]
     Active Substance: MIDAZOLAM HYDROCHLORIDE
     Indication: PRODUCT USED FOR UNKNOWN INDICATION
     Route: 042
  3. ROCURONIUM KABI [Concomitant]
     Indication: PRODUCT USED FOR UNKNOWN INDICATION
  4. PRESOFOL KABI [Concomitant]
     Indication: PRODUCT USED FOR UNKNOWN INDICATION
  5. FENTANYL. [Concomitant]
     Active Substance: FENTANYL
     Indication: PRODUCT USED FOR UNKNOWN INDICATION
  6. ACETATE RINGERS [Concomitant]
     Active Substance: CALCIUM CHLORIDE\POTASSIUM CHLORIDE\SODIUM ACETATE
     Indication: PRODUCT USED FOR UNKNOWN INDICATION

REACTIONS (1)
  - Anaphylactoid shock [Fatal]

NARRATIVE: CASE EVENT DATE: 20181030
